FAERS Safety Report 5397275-1 (Version None)
Quarter: 2007Q3

REPORT INFORMATION
  Report Type: 
  Country: None (occurrence: None)
  Receive Date: 20070723
  Receipt Date: 20070716
  Transmission Date: 20080115
  Serious: Yes (Other)
  Sender: FDA-Public Use
  Company Number: 2007SP014192

PATIENT
  Age: 2 Year

DRUGS (1)
  1. INTRON A [Suspect]
     Indication: HAEMANGIOMA
     Dosage: 0.9 MIU;, 1.2 MIU;

REACTIONS (2)
  - CONVULSION [None]
  - HYPERTHERMIA [None]
